FAERS Safety Report 5814539-5 (Version None)
Quarter: 2008Q3

REPORT INFORMATION
  Report Type: 
  Country: None (occurrence: None)
  Receive Date: 20080718
  Receipt Date: 20070710
  Transmission Date: 20090109
  Serious: No
  Sender: FDA-Public Use
  Company Number: US-KINGPHARMUSA00001-K200700879

PATIENT

DRUGS (4)
  1. LEVOXYL [Suspect]
     Indication: HYPOTHYROIDISM
     Dosage: 50 MCG, QD
     Route: 048
  2. LEVOXYL [Suspect]
     Indication: THYROID DISORDER
  3. BISOPROLOL FUMARATE [Concomitant]
     Indication: CARDIAC DISORDER
     Dosage: UNK, QD
     Route: 048
  4. ACTONEL [Concomitant]
     Indication: OSTEOPOROSIS
     Dosage: UNK, QW

REACTIONS (2)
  - ABDOMINAL PAIN [None]
  - UNDERDOSE [None]
